FAERS Safety Report 13240434 (Version 2)
Quarter: 2017Q1

REPORT INFORMATION
  Report Type: Report from Study
  Country: CA (occurrence: CA)
  Receive Date: 20170216
  Receipt Date: 20170301
  Transmission Date: 20170428
  Serious: Yes (Other)
  Sender: FDA-Public Use
  Company Number: CA-JNJFOC-20170120874

PATIENT
  Age: 57 Year
  Sex: Male

DRUGS (1)
  1. IMBRUVICA [Suspect]
     Active Substance: IBRUTINIB
     Indication: CHRONIC LYMPHOCYTIC LEUKAEMIA
     Route: 048
     Dates: start: 20170126

REACTIONS (10)
  - Arthralgia [Not Recovered/Not Resolved]
  - Haemorrhage [Unknown]
  - Pain in extremity [Unknown]
  - Fatigue [Unknown]
  - Poor quality sleep [Unknown]
  - Dry skin [Unknown]
  - Flushing [Unknown]
  - Hyperaesthesia [Recovering/Resolving]
  - Glossodynia [Recovering/Resolving]
  - Chills [Recovered/Resolved]

NARRATIVE: CASE EVENT DATE: 20170126
